FAERS Safety Report 9358731 (Version 2)
Quarter: 2013Q3

REPORT INFORMATION
  Report Type: Report from Study
  Country: BR (occurrence: BR)
  Receive Date: 20130620
  Receipt Date: 20130912
  Transmission Date: 20140515
  Serious: Yes (Other)
  Sender: FDA-Public Use
  Company Number: PHHY2013BR063278

PATIENT
  Sex: Female
  Weight: 58 kg

DRUGS (3)
  1. DIOVAN AMLO FIX [Suspect]
     Indication: BLOOD PRESSURE INCREASED
     Dosage: UNK UKN, UNK
  2. GLIFAGE [Concomitant]
     Indication: DIABETES MELLITUS
     Dosage: 1 DF(750MG), BID (AT LUNCH AND AT DINNER)
     Route: 048
  3. ROSUCOR [Concomitant]
     Indication: BLOOD CHOLESTEROL
     Dosage: 1 DF, QD(AT NIGHT)
     Route: 048

REACTIONS (8)
  - Dementia Alzheimer^s type [Recovering/Resolving]
  - Parkinson^s disease [Recovering/Resolving]
  - Carotid arteriosclerosis [Recovered/Resolved]
  - Weight decreased [Not Recovered/Not Resolved]
  - Blood pressure decreased [Recovered/Resolved]
  - Memory impairment [Not Recovered/Not Resolved]
  - Daydreaming [Not Recovered/Not Resolved]
  - Feeling abnormal [Unknown]
